FAERS Safety Report 15713955 (Version 1)
Quarter: 2018Q4

REPORT INFORMATION
  Report Type: Spontaneous
  Country: DE (occurrence: DE)
  Receive Date: 20181212
  Receipt Date: 20181212
  Transmission Date: 20190205
  Serious: Yes (Hospitalization, Other)
  Sender: FDA-Public Use
  Company Number: DE-ASTRAZENECA-2018SF59516

PATIENT
  Age: 59 Year
  Sex: Male
  Weight: 102 kg

DRUGS (1)
  1. FORXIGA [Suspect]
     Active Substance: DAPAGLIFLOZIN
     Route: 048
     Dates: start: 20171001, end: 20181001

REACTIONS (6)
  - Cardiovascular disorder [Recovered/Resolved]
  - Pyrexia [Recovered/Resolved]
  - Sepsis [Recovered/Resolved]
  - Dyspnoea [Recovered/Resolved]
  - Prostatitis [Recovered/Resolved]
  - Diabetes mellitus inadequate control [Recovered/Resolved]

NARRATIVE: CASE EVENT DATE: 20181001
